FAERS Safety Report 20886556 (Version 2)
Quarter: 2022Q2

REPORT INFORMATION
  Report Type: Report from Study
  Country: NL (occurrence: NL)
  Receive Date: 20220527
  Receipt Date: 20220530
  Transmission Date: 20220721
  Serious: Yes (Hospitalization, Other)
  Sender: FDA-Public Use
  Company Number: NL-NOVARTISPH-NVSC2022NL121171

PATIENT
  Age: 60 Year
  Sex: Male

DRUGS (2)
  1. SECUKINUMAB [Suspect]
     Active Substance: SECUKINUMAB
     Indication: Lichen planus
     Dosage: UNK
     Route: 065
  2. SECUKINUMAB [Suspect]
     Active Substance: SECUKINUMAB
     Dosage: 300 MG
     Route: 058
     Dates: start: 20211224

REACTIONS (3)
  - Intraventricular haemorrhage [Recovered/Resolved]
  - Intraventricular haemorrhage [Recovered/Resolved]
  - Product use in unapproved indication [Unknown]

NARRATIVE: CASE EVENT DATE: 20220120
